FAERS Safety Report 7151862-9 (Version None)
Quarter: 2010Q4

REPORT INFORMATION
  Report Type: 
  Country: None (occurrence: None)
  Receive Date: 20101210
  Receipt Date: 20101207
  Transmission Date: 20110411
  Serious: Yes (Other)
  Sender: FDA-Public Use
  Company Number: CL-PFIZER INC-2010105162

PATIENT
  Age: 81 Year
  Sex: Female

DRUGS (11)
  1. CELEBRA [Suspect]
     Indication: RHEUMATOID ARTHRITIS
     Dosage: 200 MG, 1X/DAY
     Dates: start: 20100201
  2. AZULFIDINE [Suspect]
     Indication: RHEUMATOID ARTHRITIS
     Dosage: 500 MG, 2X/DAY
     Dates: start: 20100814
  3. EUTIROX [Suspect]
     Indication: THYROID OPERATION
     Dosage: 100 UG, 1X/DAY
     Route: 048
  4. EUTIROX [Suspect]
     Dosage: 75 UG, 1X/DAY
     Route: 048
  5. EUTIROX [Suspect]
     Dosage: 50 UG, 1X/DAY
     Route: 048
  6. ENALAPRIL [Concomitant]
     Indication: HYPERTENSION
     Dosage: UNK
  7. OMEPRAZOLE [Concomitant]
     Indication: GASTRITIS
     Dosage: UNK
  8. PLAQUINOL [Concomitant]
     Indication: RHEUMATOID ARTHRITIS
     Dosage: UNK
  9. ACETAMINOPHEN [Concomitant]
     Dosage: 3 UNK, 3X/DAY
  10. CALCIUM CARBONATE/COLECALCIFEROL [Concomitant]
  11. PREDNISONE [Concomitant]
     Dosage: 5 MG, UNK

REACTIONS (1)
  - TACHYCARDIA [None]
